FAERS Safety Report 11093358 (Version 3)
Quarter: 2015Q3

REPORT INFORMATION
  Report Type: Report from Study
  Country: BR (occurrence: BR)
  Receive Date: 20150506
  Receipt Date: 20150716
  Transmission Date: 20151125
  Serious: Yes (Other)
  Sender: FDA-Public Use
  Company Number: BR-SA-2015SA056702

PATIENT
  Age: 51 Year
  Sex: Female
  Weight: 71 kg

DRUGS (5)
  1. PURAN [Concomitant]
     Active Substance: LEVOTHYROXINE SODIUM
     Indication: HYPERTHYROIDISM
     Dosage: START DATE: FOR OVER 20 YEARS
  2. SOLOSTAR [Concomitant]
     Active Substance: DEVICE
     Indication: TYPE 1 DIABETES MELLITUS
     Dates: start: 201504
  3. SIMVASTATIN. [Concomitant]
     Active Substance: SIMVASTATIN
     Indication: BLOOD CHOLESTEROL INCREASED
     Dates: start: 2012
  4. LANTUS SOLOSTAR [Suspect]
     Active Substance: INSULIN GLARGINE
     Indication: TYPE 1 DIABETES MELLITUS
     Dosage: DOSE: 40 IU^S DAILY (30 IU^S IN MORNING AND 10 IU AT NIGHT)?TREATMENT START: EARLY APRIL
     Route: 065
     Dates: start: 201504
  5. INSULIN, REGULAR [Suspect]
     Active Substance: INSULIN NOS
     Indication: TYPE 1 DIABETES MELLITUS
     Route: 065

REACTIONS (7)
  - Injection site hypersensitivity [Not Recovered/Not Resolved]
  - Injection site pain [Not Recovered/Not Resolved]
  - Injection site erythema [Not Recovered/Not Resolved]
  - Pain [Not Recovered/Not Resolved]
  - Injection site pruritus [Not Recovered/Not Resolved]
  - Cholecystitis [Recovering/Resolving]
  - Drug administration error [Unknown]

NARRATIVE: CASE EVENT DATE: 201504
